FAERS Safety Report 9916544 (Version 2)
Quarter: 2014Q1

REPORT INFORMATION
  Report Type: Report from Study
  Country: CA (occurrence: CA)
  Receive Date: 20140221
  Receipt Date: 20140221
  Transmission Date: 20141002
  Serious: Yes (Hospitalization)
  Sender: FDA-Public Use
  Company Number: PHHY2012CA090036

PATIENT
  Sex: Female

DRUGS (1)
  1. SANDOSTATIN LAR [Suspect]
     Indication: PARAGANGLION NEOPLASM
     Dosage: 30 MG, EVERY 4 WEEKS
     Route: 030
     Dates: start: 20060925

REACTIONS (3)
  - Malaise [Recovering/Resolving]
  - Swelling [Unknown]
  - Cough [Unknown]
